FAERS Safety Report 15708291 (Version 3)
Quarter: 2018Q4

REPORT INFORMATION
  Report Type: Report from Study
  Country: US (occurrence: US)
  Receive Date: 20181211
  Receipt Date: 20181221
  Transmission Date: 20190205
  Serious: Yes (Hospitalization)
  Sender: FDA-Public Use
  Company Number: US-ROCHE-2225497

PATIENT
  Age: 83 Year
  Sex: Female

DRUGS (2)
  1. COBIMETINIB. [Suspect]
     Active Substance: COBIMETINIB
     Indication: ANAPLASTIC THYROID CANCER
     Route: 048
  2. ATEZOLIZUMAB. [Suspect]
     Active Substance: ATEZOLIZUMAB
     Indication: ANAPLASTIC THYROID CANCER
     Route: 042

REACTIONS (1)
  - Left ventricular dysfunction [Unknown]

NARRATIVE: CASE EVENT DATE: 20181202
